FAERS Safety Report 10554028 (Version 1)
Quarter: 2014Q4

REPORT INFORMATION
  Report Type: Spontaneous
  Country: US (occurrence: None)
  Receive Date: 20141029
  Receipt Date: 20141029
  Transmission Date: 20150529
  Serious: Yes (Hospitalization)
  Sender: FDA-Public Use
  Company Number: None

PATIENT
  Age: 60 Year
  Sex: Male
  Weight: 82 kg

DRUGS (1)
  1. CLINDAMYCIN [Suspect]
     Active Substance: CLINDAMYCIN\CLINDAMYCIN PHOSPHATE
     Indication: ABSCESS
     Route: 048
     Dates: start: 20140609, end: 20140619

REACTIONS (3)
  - Clostridium difficile colitis [None]
  - Disease recurrence [None]
  - Urinary tract infection [None]

NARRATIVE: CASE EVENT DATE: 20140816
